FAERS Safety Report 21825541 (Version 2)
Quarter: 2023Q2

REPORT INFORMATION
  Report Type: Spontaneous
  Country: CZ (occurrence: CZ)
  Receive Date: 20230105
  Receipt Date: 20230615
  Transmission Date: 20230722
  Serious: Yes (Death, Other)
  Sender: FDA-Public Use
  Company Number: CZ-Blueprint Medicines Corporation-SP-CZ-2023-000030

PATIENT
  Age: 16 Year
  Sex: Male

DRUGS (1)
  1. AVAPRITINIB [Suspect]
     Active Substance: AVAPRITINIB
     Indication: Malignant glioma
     Route: 065
     Dates: start: 202212

REACTIONS (3)
  - Haemorrhage intracranial [Fatal]
  - Disease progression [Unknown]
  - Off label use [Unknown]

NARRATIVE: CASE EVENT DATE: 20221201
